FAERS Safety Report 4663237-2 (Version None)
Quarter: 2005Q2

REPORT INFORMATION
  Report Type: 
  Country: None (occurrence: None)
  Receive Date: 20050513
  Receipt Date: 20050502
  Transmission Date: 20051028
  Serious: Yes (Life-Threatening, Hospitalization, Other)
  Sender: FDA-Public Use
  Company Number: 2005070853

PATIENT
  Age: 70 Year
  Sex: Female
  Weight: 81.1939 kg

DRUGS (6)
  1. BEXTRA [Suspect]
     Indication: ARTHRITIS
     Dosage: 20 MG (20 MG, 1 IN 1 D), ORAL
     Route: 048
     Dates: start: 20030601, end: 20050201
  2. METOPROLOL TARTRATE [Concomitant]
  3. MESALAMINE [Concomitant]
  4. RANITIDINE HYDROCHLORIDE [Concomitant]
  5. CLONAZEPAM [Concomitant]
  6. ASPIRIN [Concomitant]

REACTIONS (2)
  - CEREBROVASCULAR ACCIDENT [None]
  - RASH MACULO-PAPULAR [None]
